FAERS Safety Report 13284770 (Version 1)
Quarter: 2017Q1

REPORT INFORMATION
  Report Type: Spontaneous
  Country: US (occurrence: US)
  Receive Date: 20170301
  Receipt Date: 20170301
  Transmission Date: 20170428
  Serious: Yes (Other)
  Sender: FDA-Public Use
  Company Number: US-PFIZER INC-2017083569

PATIENT
  Sex: Female

DRUGS (1)
  1. PREMARIN [Suspect]
     Active Substance: ESTROGENS, CONJUGATED

REACTIONS (6)
  - Vulvovaginal dryness [Unknown]
  - Rotator cuff syndrome [Unknown]
  - Muscle rupture [Unknown]
  - Hot flush [Unknown]
  - Memory impairment [Unknown]
  - Condition aggravated [Unknown]
